FAERS Safety Report 8539727-9 (Version None)
Quarter: 2012Q3

REPORT INFORMATION
  Report Type: 
  Country: None (occurrence: None)
  Receive Date: 20120726
  Receipt Date: 20120313
  Transmission Date: 20120928
  Serious: No
  Sender: FDA-Public Use
  Company Number: US-ASTRAZENECA-2010SE13768

PATIENT
  Age: 62 Year
  Sex: Female
  Weight: 81.6 kg

DRUGS (2)
  1. SEROQUEL XR [Suspect]
     Indication: BIPOLAR DISORDER
     Route: 048
     Dates: start: 20090601
  2. SEROQUEL XR [Suspect]
     Route: 048

REACTIONS (4)
  - MALAISE [None]
  - WEIGHT INCREASED [None]
  - DRUG DOSE OMISSION [None]
  - HEARING IMPAIRED [None]
